FAERS Safety Report 5743271-1 (Version None)
Quarter: 2008Q2

REPORT INFORMATION
  Report Type: 
  Country: None (occurrence: None)
  Receive Date: 20080519
  Receipt Date: 20080512
  Transmission Date: 20081010
  Serious: Yes (Other)
  Sender: FDA-Public Use
  Company Number: US-GILEAD-2008-0016418

PATIENT
  Sex: Female

DRUGS (1)
  1. LETAIRIS [Suspect]
     Route: 048
     Dates: end: 20080401

REACTIONS (1)
  - CARDIAC FAILURE CONGESTIVE [None]
